FAERS Safety Report 6534400-0 (Version None)
Quarter: 2010Q1

REPORT INFORMATION
  Report Type: 
  Country: None (occurrence: None)
  Receive Date: 20100108
  Receipt Date: 20100108
  Transmission Date: 20100710
  Serious: Yes (Hospitalization)
  Sender: FDA-Public Use
  Company Number: None

PATIENT
  Age: 61 Year
  Sex: Male
  Weight: 76 kg

DRUGS (2)
  1. DIVALPROEX SODIUM [Suspect]
     Indication: BIPOLAR DISORDER
     Dosage: 2000 MG AT BEDTIME PO
     Route: 048
     Dates: start: 20080422, end: 20091015
  2. DIVALPROEX SODIUM [Suspect]
     Indication: MANIA
     Dosage: 2000 MG AT BEDTIME PO
     Route: 048
     Dates: start: 20080422, end: 20091015

REACTIONS (7)
  - ANTICONVULSANT DRUG LEVEL ABOVE THERAPEUTIC [None]
  - CONFUSIONAL STATE [None]
  - DEPRESSED LEVEL OF CONSCIOUSNESS [None]
  - DEPRESSION [None]
  - DIZZINESS [None]
  - MENTAL STATUS CHANGES [None]
  - SEDATION [None]
